FAERS Safety Report 18757697 (Version 1)
Quarter: 2021Q1

REPORT INFORMATION
  Report Type: Spontaneous
  Country: ES (occurrence: ES)
  Receive Date: 20210119
  Receipt Date: 20210119
  Transmission Date: 20210419
  Serious: Yes (Hospitalization)
  Sender: FDA-Public Use
  Company Number: NVSC2021ES009092

PATIENT
  Age: 90 Year
  Sex: Male

DRUGS (7)
  1. METFORMINA SANDOZ [Suspect]
     Active Substance: METFORMIN HYDROCHLORIDE
     Indication: DIABETES MELLITUS
     Dosage: 850 MG, Q12H
     Route: 048
     Dates: start: 20111217
  2. ZALDIAR [Concomitant]
     Active Substance: ACETAMINOPHEN\TRAMADOL HYDROCHLORIDE
     Indication: MUSCULOSKELETAL DISCOMFORT
     Dosage: 1 DF, Q24H
     Route: 048
     Dates: start: 20171025
  3. DONEPEZILO [Concomitant]
     Active Substance: DONEPEZIL
     Indication: DEMENTIA ALZHEIMER^S TYPE
     Dosage: 10 MG, Q24H
     Route: 048
     Dates: start: 20200723
  4. SINTROM [Concomitant]
     Active Substance: ACENOCOUMAROL
     Indication: ATRIAL FIBRILLATION
     Dosage: 2 MG, Q24H
     Route: 048
     Dates: start: 20100217
  5. SERTRALINA CINFA [Concomitant]
     Indication: DEPRESSION
     Dosage: 75 MG, Q24H
     Route: 048
     Dates: start: 20190726
  6. AMLODIPINO SANDOZ [Concomitant]
     Indication: ESSENTIAL HYPERTENSION
     Dosage: 5 MG, Q24H
     Route: 048
     Dates: start: 20100526
  7. CO DIOVAN [Concomitant]
     Active Substance: HYDROCHLOROTHIAZIDE\VALSARTAN
     Indication: ESSENTIAL HYPERTENSION
     Dosage: 160 MG, Q24H
     Route: 048
     Dates: start: 20100519

REACTIONS (2)
  - Lactic acidosis [Recovering/Resolving]
  - Haematemesis [Recovering/Resolving]

NARRATIVE: CASE EVENT DATE: 20210109
